FAERS Safety Report 10610009 (Version 1)
Quarter: 2014Q4

REPORT INFORMATION
  Report Type: Spontaneous
  Country: US (occurrence: US)
  Receive Date: 20141126
  Receipt Date: 20141126
  Transmission Date: 20150529
  Serious: No
  Sender: FDA-Public Use
  Company Number: US-SHIRE-US201407681

PATIENT
  Age: 7 Year

DRUGS (1)
  1. VYVANSE [Suspect]
     Active Substance: LISDEXAMFETAMINE DIMESYLATE
     Indication: PRODUCT USED FOR UNKNOWN INDICATION
     Dosage: 20 MG, UNKNOWN
     Route: 048
     Dates: start: 20141105, end: 20141105

REACTIONS (3)
  - Onychophagia [Unknown]
  - Emotional disorder [Unknown]
  - Chills [Unknown]

NARRATIVE: CASE EVENT DATE: 20141105
